FAERS Safety Report 25423094 (Version 1)
Quarter: 2025Q2

REPORT INFORMATION
  Report Type: Spontaneous
  Country: US (occurrence: None)
  Receive Date: 20250610
  Receipt Date: 20250610
  Transmission Date: 20250716
  Serious: Yes (Disabling)
  Sender: FDA-CTU
  Company Number: None

PATIENT
  Age: 35 Year
  Sex: Female

DRUGS (2)
  1. EFFEXOR [Suspect]
     Active Substance: VENLAFAXINE HYDROCHLORIDE
  2. ATARAX [Suspect]
     Active Substance: HYDROXYZINE HYDROCHLORIDE

REACTIONS (14)
  - Panic attack [None]
  - Constipation [None]
  - Tension [None]
  - Anxiety [None]
  - Insomnia [None]
  - Brain fog [None]
  - Somnolence [None]
  - Loss of libido [None]
  - Irritability [None]
  - Pruritus [None]
  - Hyperventilation [None]
  - Hunger [None]
  - Fatigue [None]
  - Activities of daily living decreased [None]
